FAERS Safety Report 6664788-1 (Version None)
Quarter: 2010Q1

REPORT INFORMATION
  Report Type: 
  Country: None (occurrence: None)
  Receive Date: 20100330
  Receipt Date: 20100317
  Transmission Date: 20100710
  Serious: Yes (Other)
  Sender: FDA-Public Use
  Company Number: 144-20484-10021166

PATIENT
  Age: 40 Year
  Sex: Female
  Weight: 72 kg

DRUGS (4)
  1. INNOHEP [Suspect]
     Indication: PROPHYLAXIS
     Dosage: 130 IU/KG (10000 IU, 1 IN 1 D) SUBCUTANEOUS
     Route: 058
     Dates: start: 20071009, end: 20071030
  2. INNOHEP [Suspect]
     Indication: PROPHYLAXIS
     Dosage: 130 IU/KG (10000 IU, 1 IN 1 D) SUBCUTANEOUS
     Route: 058
     Dates: end: 20080229
  3. IRON (IRON) [Suspect]
     Indication: PROPHYLAXIS
     Dosage: 14 HOURS PROIR TO DELIVERY (10000 IU, 1 IN 1D) SUBCUTANEOUS
     Route: 058
  4. ASPIRIN [Concomitant]

REACTIONS (2)
  - DRUG EXPOSURE DURING PREGNANCY [None]
  - INDUCED LABOUR [None]
